FAERS Safety Report 11161423 (Version 1)
Quarter: 2015Q2

REPORT INFORMATION
  Report Type: Spontaneous
  Country: US (occurrence: US)
  Receive Date: 20150604
  Receipt Date: 20150604
  Transmission Date: 20150821
  Serious: No
  Sender: FDA-Public Use
  Company Number: US-SA-2014SA091312

PATIENT
  Age: 52 Year
  Sex: Female

DRUGS (2)
  1. LANTUS SOLOSTAR [Suspect]
     Active Substance: INSULIN GLARGINE
     Indication: PRODUCT USED FOR UNKNOWN INDICATION
     Dosage: DOSE:80 UNIT(S)
     Route: 058
  2. LANTUS SOLOSTAR [Suspect]
     Active Substance: INSULIN GLARGINE
     Indication: PRODUCT USED FOR UNKNOWN INDICATION
     Dosage: LESS THAN 60 UNITS
     Route: 058

REACTIONS (5)
  - Blood glucose abnormal [Unknown]
  - Headache [Unknown]
  - Condition aggravated [Unknown]
  - Nausea [Unknown]
  - Injection site pain [Unknown]
